FAERS Safety Report 19712445 (Version 1)
Quarter: 2021Q3

REPORT INFORMATION
  Report Type: Spontaneous
  Country: US (occurrence: US)
  Receive Date: 20210816
  Receipt Date: 20210816
  Transmission Date: 20211014
  Serious: No
  Sender: FDA-Public Use
  Company Number: US-KALA PHARAMACEUTICALS-2021KLA00043

PATIENT
  Age: 93 Year
  Sex: Female

DRUGS (1)
  1. EYSUVIS [Suspect]
     Active Substance: LOTEPREDNOL ETABONATE
     Dosage: 1 DROP, IN BOTH EYES
     Route: 047

REACTIONS (3)
  - Rash [Unknown]
  - Eye pruritus [Unknown]
  - Drug ineffective [Recovered/Resolved]
